FAERS Safety Report 8150041-6 (Version None)
Quarter: 2012Q1

REPORT INFORMATION
  Report Type: 
  Country: None (occurrence: None)
  Receive Date: 20120219
  Receipt Date: 20120207
  Transmission Date: 20120608
  Serious: Yes (Hospitalization, Other)
  Sender: FDA-Public Use
  Company Number: US-MYLANLABS-2012S1003489

PATIENT
  Sex: Female

DRUGS (24)
  1. ZOCOR [Concomitant]
  2. LOPID [Concomitant]
  3. GLUCOSAMINE [Concomitant]
  4. ATIVAN [Concomitant]
  5. MEDROL [Concomitant]
  6. DOXEPIN HCL [Concomitant]
  7. LOVAZA [Concomitant]
  8. NEXIUM [Concomitant]
  9. PERCOCET [Concomitant]
  10. DEMEROL [Concomitant]
  11. LISINOPRIL [Concomitant]
  12. METOCLOPRAMIDE [Concomitant]
  13. COZAAR [Concomitant]
  14. VYTORIN [Concomitant]
  15. PROZAC [Concomitant]
  16. DIGOXIN [Suspect]
     Indication: HEART RATE IRREGULAR
     Dates: start: 20010510, end: 20080528
  17. DIGOXIN [Suspect]
     Indication: HEART RATE ABNORMAL
     Dates: start: 20010510, end: 20080528
  18. REGLAN [Concomitant]
  19. PRILOSEC [Concomitant]
  20. COREG [Concomitant]
  21. ERGOCALCIFEROL [Concomitant]
  22. DIGOXIN [Suspect]
     Indication: PALPITATIONS
     Dates: start: 20010510, end: 20080528
  23. CRESTOR [Concomitant]
  24. TORADOL [Concomitant]

REACTIONS (62)
  - RENAL FAILURE [None]
  - RENAL CYST [None]
  - TRACHEITIS [None]
  - PAIN [None]
  - DECREASED APPETITE [None]
  - CARDIAC MURMUR [None]
  - CHEST DISCOMFORT [None]
  - DEPRESSION [None]
  - GASTRITIS EROSIVE [None]
  - GASTROINTESTINAL EROSION [None]
  - NASAL CONGESTION [None]
  - PYREXIA [None]
  - RHINORRHOEA [None]
  - VARICOSE VEIN [None]
  - CHEST PAIN [None]
  - CARDIOACTIVE DRUG LEVEL INCREASED [None]
  - ABDOMINAL TENDERNESS [None]
  - FAMILY STRESS [None]
  - HEADACHE [None]
  - PROTEINURIA [None]
  - TREMOR [None]
  - DYSPNOEA [None]
  - TOXICITY TO VARIOUS AGENTS [None]
  - MITRAL VALVE PROLAPSE [None]
  - ATRIAL TACHYCARDIA [None]
  - ARTHRALGIA [None]
  - FALL [None]
  - LOW DENSITY LIPOPROTEIN INCREASED [None]
  - OEDEMA PERIPHERAL [None]
  - COUGH [None]
  - ANGINA PECTORIS [None]
  - MAJOR DEPRESSION [None]
  - TACHYARRHYTHMIA [None]
  - BLOOD PRESSURE INCREASED [None]
  - GASTRIC POLYPS [None]
  - MIGRAINE [None]
  - RENAL FAILURE CHRONIC [None]
  - SWELLING [None]
  - TACHYCARDIA [None]
  - VOMITING [None]
  - FATIGUE [None]
  - CATHETERISATION CARDIAC [None]
  - ELECTROCARDIOGRAM ST-T SEGMENT ABNORMAL [None]
  - GASTROOESOPHAGEAL REFLUX DISEASE [None]
  - HYPERTENSION [None]
  - CONFUSIONAL STATE [None]
  - INJURY [None]
  - ABDOMINAL PAIN UPPER [None]
  - FOOT FRACTURE [None]
  - HYPERAESTHESIA [None]
  - NAUSEA [None]
  - STRESS [None]
  - TACHYCARDIA PAROXYSMAL [None]
  - TEMPOROMANDIBULAR JOINT SYNDROME [None]
  - DYSPEPSIA [None]
  - ILL-DEFINED DISORDER [None]
  - ECONOMIC PROBLEM [None]
  - BLOOD URINE PRESENT [None]
  - PRURITUS GENERALISED [None]
  - SINUS TACHYCARDIA [None]
  - PALPITATIONS [None]
  - ERUCTATION [None]
